FAERS Safety Report 22240092 (Version 1)
Quarter: 2023Q2

REPORT INFORMATION
  Report Type: Spontaneous
  Country: None (occurrence: DE)
  Receive Date: 20230421
  Receipt Date: 20230421
  Transmission Date: 20230722
  Serious: Yes (Hospitalization, Other)
  Sender: FDA-Public Use
  Company Number: DE-B.Braun Medical Inc.-2140658

PATIENT
  Age: 79 Year
  Sex: Male

DRUGS (13)
  1. SODIUM CHLORIDE [Suspect]
     Active Substance: SODIUM CHLORIDE
  2. GEMCITABINE [Suspect]
     Active Substance: GEMCITABINE
  3. ABRAXANE [Suspect]
     Active Substance: PACLITAXEL
  4. DEXAMETHASONE [Suspect]
     Active Substance: DEXAMETHASONE
  5. TORSEMIDE [Concomitant]
     Active Substance: TORSEMIDE
  6. CANDESARTAN [Concomitant]
     Active Substance: CANDESARTAN
  7. METOCLOPRAMIDE [Concomitant]
     Active Substance: METOCLOPRAMIDE
  8. METFORMIN [Concomitant]
     Active Substance: METFORMIN HYDROCHLORIDE
  9. METAMIZOL [Concomitant]
     Active Substance: METAMIZOLE SODIUM
  10. ATORVASTATIN [Concomitant]
     Active Substance: ATORVASTATIN
  11. ONDANSETRON [Concomitant]
     Active Substance: ONDANSETRON
  12. TOUJEO [Concomitant]
     Active Substance: INSULIN GLARGINE
  13. METOPROLOL [Concomitant]
     Active Substance: METOPROLOL

REACTIONS (5)
  - Pyrexia [Unknown]
  - Jaundice [Unknown]
  - Immobile [Unknown]
  - Asthenia [Unknown]
  - General physical health deterioration [Unknown]
